FAERS Safety Report 8413487-4 (Version None)
Quarter: 2012Q2

REPORT INFORMATION
  Report Type: 
  Country: None (occurrence: None)
  Receive Date: 20120605
  Receipt Date: 20120530
  Transmission Date: 20120825
  Serious: Yes (Hospitalization)
  Sender: FDA-Public Use
  Company Number: FR-ROCHE-1060364

PATIENT
  Sex: Male

DRUGS (1)
  1. AVASTIN [Suspect]
     Indication: OFF LABEL USE
     Route: 050
     Dates: start: 20120229, end: 20120229

REACTIONS (1)
  - ENDOPHTHALMITIS [None]
